FAERS Safety Report 8089211 (Version 2)
Quarter: 2013Q3

REPORT INFORMATION
  Report Type: Spontaneous
  Country: US (occurrence: US)
  Receive Date: 20110813
  Receipt Date: 20130916
  Transmission Date: 20140515
  Serious: Yes (Hospitalization, Other)
  Sender: FDA-Public Use
  Company Number: US-AMGEN-USASP2011039721

PATIENT
  Age: 54 Year
  Sex: Male

DRUGS (1)
  1. ENBREL [Suspect]
     Indication: RHEUMATOID ARTHRITIS
     Dosage: 50 MG, QWK
     Route: 058
     Dates: start: 20021029

REACTIONS (5)
  - Renal cell carcinoma [Unknown]
  - Abdominal operation [Unknown]
  - Nephrolithiasis [Recovered/Resolved]
  - Pain in extremity [Unknown]
  - Pleural effusion [Unknown]
